FAERS Safety Report 9242386 (Version 1)
Quarter: 2013Q2

REPORT INFORMATION
  Report Type: Spontaneous
  Country: US (occurrence: US)
  Receive Date: 20130419
  Receipt Date: 20130419
  Transmission Date: 20140414
  Serious: No
  Sender: FDA-Public Use
  Company Number: US-B.I. PHARMACEUTICALS,INC./RIDGEFIELD-2013-BI-09768BP

PATIENT
  Age: 58 Year
  Sex: Male
  Weight: 79 kg

DRUGS (3)
  1. SPIRIVA [Suspect]
     Indication: LANGERHANS^ CELL HISTIOCYTOSIS
     Dosage: 18 MCG
     Route: 055
     Dates: start: 200904
  2. ADVAIR [Concomitant]
     Indication: LANGERHANS^ CELL HISTIOCYTOSIS
     Route: 055
     Dates: start: 200904
  3. PROAIR [Concomitant]
     Indication: LANGERHANS^ CELL HISTIOCYTOSIS
     Route: 055
     Dates: start: 200904

REACTIONS (1)
  - Prostatomegaly [Not Recovered/Not Resolved]
